FAERS Safety Report 12304146 (Version 2)
Quarter: 2016Q2

REPORT INFORMATION
  Report Type: Report from Study
  Country: US (occurrence: US)
  Receive Date: 20160426
  Receipt Date: 20160505
  Transmission Date: 20160815
  Serious: Yes (Death, Other)
  Sender: FDA-Public Use
  Company Number: US-AMGEN-USASL2016050734

PATIENT
  Age: 95 Year
  Sex: Female

DRUGS (1)
  1. PROLIA [Suspect]
     Active Substance: DENOSUMAB
     Indication: OSTEOPOROSIS
     Dosage: UNK
     Route: 065
     Dates: end: 20150611

REACTIONS (5)
  - Influenza [Unknown]
  - Quality of life decreased [Unknown]
  - Pneumonitis [Unknown]
  - Thrombosis [Unknown]
  - Death [Fatal]

NARRATIVE: CASE EVENT DATE: 201507
